FAERS Safety Report 21348369 (Version 1)
Quarter: 2022Q3

REPORT INFORMATION
  Report Type: Spontaneous
  Country: US (occurrence: US)
  Receive Date: 20220919
  Receipt Date: 20220919
  Transmission Date: 20221027
  Serious: No
  Sender: FDA-Public Use
  Company Number: US-BRISTOL-MYERS SQUIBB COMPANY-2022-107350

PATIENT
  Age: 75 Year
  Sex: Female
  Weight: 58.06 kg

DRUGS (1)
  1. LENALIDOMIDE [Suspect]
     Active Substance: LENALIDOMIDE
     Indication: Diffuse large B-cell lymphoma
     Dosage: D 1-21 Q 28 DAYS
     Route: 048
     Dates: start: 20210922

REACTIONS (1)
  - Intentional product use issue [Unknown]
